FAERS Safety Report 7247783-3 (Version None)
Quarter: 2011Q1

REPORT INFORMATION
  Report Type: 
  Country: None (occurrence: None)
  Receive Date: 20110127
  Receipt Date: 20110118
  Transmission Date: 20110831
  Serious: Yes (Death)
  Sender: FDA-Public Use
  Company Number: NL-ELI_LILLY_AND_COMPANY-NL201010005684

PATIENT
  Sex: Male
  Weight: 95 kg

DRUGS (5)
  1. RITALIN [Concomitant]
  2. ZYPREXA [Suspect]
     Indication: SCHIZOPHRENIA
     Dosage: 15 MG, UNK
     Route: 048
     Dates: start: 20100604
  3. ZYPREXA [Suspect]
     Dosage: 10 MG, UNKNOWN
     Route: 048
     Dates: start: 20100601, end: 20101013
  4. BENZODIAZEPINE DERIVATIVES [Concomitant]
  5. METHADON [Concomitant]

REACTIONS (5)
  - DEATH [None]
  - WEIGHT INCREASED [None]
  - DRUG SCREEN POSITIVE [None]
  - CARDIAC DISORDER [None]
  - OFF LABEL USE [None]
